FAERS Safety Report 6530619-3 (Version None)
Quarter: 2010Q1

REPORT INFORMATION
  Report Type: 
  Country: None (occurrence: None)
  Receive Date: 20100108
  Receipt Date: 20091231
  Transmission Date: 20100710
  Serious: Yes (Hospitalization)
  Sender: FDA-Public Use
  Company Number: US-BIOGENIDEC-2009BI042395

PATIENT
  Age: 65 Year
  Sex: Female
  Weight: 90 kg

DRUGS (3)
  1. AVONEX [Suspect]
     Indication: MULTIPLE SCLEROSIS
     Route: 030
     Dates: start: 20050415, end: 20050601
  2. AVONEX [Suspect]
     Route: 030
     Dates: start: 20050801
  3. COPAXONE [Concomitant]
     Indication: MULTIPLE SCLEROSIS
     Dates: start: 20050415, end: 20050601

REACTIONS (8)
  - CEREBRAL DISORDER [None]
  - CHOLECYSTECTOMY [None]
  - DERMATITIS CONTACT [None]
  - EMPHYSEMA [None]
  - HYPOAESTHESIA [None]
  - HYPOAESTHESIA ORAL [None]
  - MUSCLE SPASMS [None]
  - PERTUSSIS [None]
